FAERS Safety Report 5116842-3 (Version None)
Quarter: 2006Q3

REPORT INFORMATION
  Report Type: 
  Country: None (occurrence: None)
  Receive Date: 20060928
  Receipt Date: 20060822
  Transmission Date: 20061208
  Serious: Yes (Death, Other)
  Sender: FDA-Public Use
  Company Number: GB-PURDUE-GBR_2006_0002446

PATIENT
  Age: 49 Year
  Sex: Female

DRUGS (11)
  1. OXYCONTIN [Suspect]
     Indication: CANCER PAIN
     Dosage: 130 MG, BID
     Route: 048
     Dates: start: 20060619
  2. OXYCODONE HCL [Suspect]
     Indication: CANCER PAIN
     Dosage: 140 MG, Q8H
     Route: 058
     Dates: start: 20060627
  3. OXYCODONE HCL [Suspect]
     Dosage: 130 MG, Q8H
     Route: 058
     Dates: start: 20060626, end: 20060627
  4. OXYCODONE HCL [Suspect]
     Dosage: 120 MG, Q12H
     Route: 058
     Dates: start: 20060625, end: 20060626
  5. OXYCODONE HCL [Suspect]
     Dosage: 85 MG, Q12H
     Route: 058
     Dates: start: 20060622, end: 20060625
  6. MIDAZOLAM HCL [Concomitant]
     Indication: AGITATION
     Dosage: 30 MG, DAILY
     Route: 058
     Dates: start: 20060627
  7. MIDAZOLAM HCL [Concomitant]
     Dosage: 10 MG, UNK
     Route: 058
     Dates: start: 20060625
  8. MIDAZOLAM HCL [Concomitant]
     Dosage: 5 MG, UNK
     Route: 058
     Dates: start: 20060622, end: 20060625
  9. OXYNORM [Suspect]
     Indication: BREAKTHROUGH PAIN
     Dosage: AS REQUIRED
     Route: 042
     Dates: start: 20060624
  10. OXYNORM [Suspect]
     Dosage: 8 INJECTIONS OF 15-20 MG
     Route: 042
     Dates: start: 20060622, end: 20060624
  11. LEVOMEPROMAZINE [Concomitant]
     Indication: PROPHYLAXIS OF NAUSEA AND VOMITING
     Dosage: 6.25 MG, DAILY
     Route: 065
     Dates: start: 20060625

REACTIONS (4)
  - AGITATION [None]
  - DEATH [None]
  - PAIN [None]
  - RESTLESSNESS [None]
